FAERS Safety Report 15587582 (Version 1)
Quarter: 2018Q4

REPORT INFORMATION
  Report Type: Spontaneous
  Country: US (occurrence: US)
  Receive Date: 20181105
  Receipt Date: 20181105
  Transmission Date: 20190205
  Serious: No
  Sender: FDA-Public Use
  Company Number: US-ABBVIE-18S-163-2257855-00

PATIENT
  Sex: Female
  Weight: 73 kg

DRUGS (1)
  1. FENOFIBRATE. [Suspect]
     Active Substance: FENOFIBRATE
     Indication: BLOOD CHOLESTEROL
     Route: 048
     Dates: start: 20180122

REACTIONS (2)
  - Hypoaesthesia [Recovered/Resolved]
  - Poor peripheral circulation [Recovered/Resolved]
